FAERS Safety Report 9761478 (Version 1)
Quarter: 2013Q4

REPORT INFORMATION
  Report Type: Spontaneous
  Country: US (occurrence: US)
  Receive Date: 20131216
  Receipt Date: 20131216
  Transmission Date: 20140711
  Serious: No
  Sender: FDA-Public Use
  Company Number: US-BIOGENIDEC-2013BI107624

PATIENT
  Age: 54 Year
  Sex: Female

DRUGS (12)
  1. TECFIDERA [Suspect]
     Indication: MULTIPLE SCLEROSIS
     Route: 048
     Dates: start: 20130927
  2. ASPIRIN [Concomitant]
  3. BACLOFEN [Concomitant]
  4. LISINOPRIL [Concomitant]
  5. MOTRIN IB [Concomitant]
  6. NEURONTIN [Concomitant]
  7. NUVIGIL [Concomitant]
  8. PERCOCET [Concomitant]
  9. VALACYCLOVIR HCL [Concomitant]
  10. VITAMIN D [Concomitant]
  11. VIVELLE-DOT [Concomitant]
  12. ZANTAC [Concomitant]

REACTIONS (1)
  - Flushing [Recovered/Resolved]
